FAERS Safety Report 5936939-5 (Version None)
Quarter: 2008Q4

REPORT INFORMATION
  Report Type: 
  Country: None (occurrence: None)
  Receive Date: 20081031
  Receipt Date: 20081027
  Transmission Date: 20090506
  Serious: Yes (Hospitalization, Other)
  Sender: FDA-Public Use
  Company Number: US-BAYER-200836980NA

PATIENT
  Age: 49 Year
  Sex: Female

DRUGS (2)
  1. YAZ [Suspect]
     Indication: PREMENSTRUAL SYNDROME
     Dosage: TOTAL DAILY DOSE: 1 DF
     Route: 048
     Dates: start: 20061001, end: 20080901
  2. YAZ [Suspect]
     Dosage: TOTAL DAILY DOSE: 1 DF
     Route: 048
     Dates: start: 20081001

REACTIONS (2)
  - UTERINE LEIOMYOMA [None]
  - VAGINAL HAEMORRHAGE [None]
